FAERS Safety Report 25604522 (Version 2)
Quarter: 2025Q3

REPORT INFORMATION
  Report Type: Spontaneous
  Country: US (occurrence: US)
  Receive Date: 20250725
  Receipt Date: 20250922
  Transmission Date: 20251021
  Serious: Yes (Life-Threatening, Hospitalization, Other)
  Sender: BAXTER
  Company Number: US-BAXTER-2025BAX018496

PATIENT
  Sex: Male

DRUGS (1)
  1. DOBUTAMINE [Suspect]
     Active Substance: DOBUTAMINE HYDROCHLORIDE
     Indication: Cardiac failure
     Route: 042
     Dates: start: 20250617, end: 20250619

REACTIONS (4)
  - Venous oxygen saturation decreased [Unknown]
  - Shock [Unknown]
  - Device infusion issue [Unknown]
  - Device occlusion [Unknown]

NARRATIVE: CASE EVENT DATE: 20250619
